FAERS Safety Report 8834442 (Version 1)
Quarter: 2012Q4

REPORT INFORMATION
  Report Type: 
  Country: US (occurrence: US)
  Receive Date: 20121010
  Receipt Date: 20121010
  Transmission Date: 20130627
  Serious: Yes (Disabling, Other)
  Sender: FDA-Public Use
  Company Number: US-009507513-1202USA02287

PATIENT

DRUGS (2)
  1. FOSAMAX [Suspect]
     Dosage: UNK mg, UNK
     Route: 048
     Dates: start: 2000, end: 200910
  2. FOSAMAX [Suspect]
     Dosage: 70 mg, UNK
     Route: 048

REACTIONS (1)
  - Osteonecrosis of jaw [Not Recovered/Not Resolved]
